FAERS Safety Report 6964499-9 (Version None)
Quarter: 2010Q3

REPORT INFORMATION
  Report Type: 
  Country: None (occurrence: None)
  Receive Date: 20100903
  Receipt Date: 20100823
  Transmission Date: 20110219
  Serious: Yes (Hospitalization)
  Sender: FDA-Public Use
  Company Number: JP-PFIZER INC-2010085527

PATIENT
  Age: 60 Year
  Sex: Female

DRUGS (3)
  1. REVATIO [Suspect]
     Indication: PULMONARY HYPERTENSION
     Dosage: 60 MG, 1X/DAY
     Route: 048
     Dates: start: 20100615
  2. BOSENTAN [Suspect]
     Indication: PULMONARY HYPERTENSION
     Dosage: UNK
     Route: 048
     Dates: start: 20100608
  3. PROCYLIN [Suspect]
     Indication: PULMONARY HYPERTENSION
     Dosage: UNK
     Route: 048
     Dates: start: 20100622

REACTIONS (3)
  - INTERSTITIAL LUNG DISEASE [None]
  - PYREXIA [None]
  - URTICARIA [None]
